FAERS Safety Report 8021819 (Version 2)
Quarter: 2012Q4

REPORT INFORMATION
  Report Type: 
  Country: AU (occurrence: AU)
  Receive Date: 20110705
  Receipt Date: 20120928
  Transmission Date: 20130627
  Serious: Yes (Other)
  Sender: FDA-Public Use
  Company Number: AU-PFIZER INC-2011145750

PATIENT
  Age: 61 Year
  Sex: Female

DRUGS (2)
  1. CABERGOLINE [Suspect]
     Indication: RESTLESS LEGS SYNDROME
     Dosage: UNK
     Dates: start: 1998, end: 2008
  2. PERMAX [Suspect]
     Dosage: UNK
     Dates: start: 1998, end: 2008

REACTIONS (5)
  - Pathological gambling [Recovered/Resolved]
  - Suicidal ideation [Recovered/Resolved]
  - Off label use [Unknown]
  - Shoplifting [Recovered/Resolved]
  - Restless legs syndrome [Unknown]
